FAERS Safety Report 7969474-3 (Version None)
Quarter: 2011Q4

REPORT INFORMATION
  Report Type: 
  Country: None (occurrence: None)
  Receive Date: 20111212
  Receipt Date: 20111201
  Transmission Date: 20120403
  Serious: Yes (Hospitalization, Other)
  Sender: FDA-Public Use
  Company Number: US-BIOGENIDEC-2011BI043523

PATIENT
  Age: 65 Year
  Sex: Female

DRUGS (16)
  1. LEXAPRO [Concomitant]
  2. COUGH DROP [Concomitant]
  3. CHOLESTEROL MEDICATION (NOS) [Concomitant]
     Indication: BLOOD CHOLESTEROL INCREASED
  4. LOVAZA [Concomitant]
  5. AVONEX [Suspect]
     Indication: MULTIPLE SCLEROSIS
     Route: 030
     Dates: end: 20111031
  6. METOPROLOL TARTRATE [Concomitant]
  7. ASPIRIN [Concomitant]
  8. DILANTIN [Concomitant]
  9. TRICOR [Concomitant]
  10. AVONEX [Suspect]
     Route: 030
     Dates: start: 20030106
  11. DILANTIN [Concomitant]
     Indication: CONVULSION
  12. HYDROCHLOROTHIAZIDE [Concomitant]
  13. ENALAPRIL MALEATE [Concomitant]
  14. NAMENDA [Concomitant]
  15. VITAMIN D [Concomitant]
  16. TUSSIN [Concomitant]

REACTIONS (15)
  - BREAST MASS [None]
  - OSTEOPOROSIS [None]
  - SCOLIOSIS [None]
  - THERAPY CESSATION [None]
  - WRIST FRACTURE [None]
  - HYPERTENSION [None]
  - FOOT FRACTURE [None]
  - DEMENTIA ALZHEIMER'S TYPE [None]
  - BALANCE DISORDER [None]
  - CONVULSION [None]
  - TRANSIENT ISCHAEMIC ATTACK [None]
  - WRONG TECHNIQUE IN DRUG USAGE PROCESS [None]
  - VERTIGO POSITIONAL [None]
  - FOOT DEFORMITY [None]
  - INJECTION SITE PAIN [None]
